FAERS Safety Report 9553500 (Version 3)
Quarter: 2013Q4

REPORT INFORMATION
  Report Type: Spontaneous
  Country: FR (occurrence: FR)
  Receive Date: 20130925
  Receipt Date: 20131209
  Transmission Date: 20140711
  Serious: Yes (Other)
  Sender: FDA-Public Use
  Company Number: FR-PFIZER INC-2013269753

PATIENT
  Age: 59 Year
  Sex: Female
  Weight: 70 kg

DRUGS (3)
  1. XALKORI [Suspect]
     Indication: UTERINE CANCER
     Dosage: 250 MG, 2X/DAY
     Dates: start: 20130124
  2. TIORFAN [Concomitant]
  3. IMODIUM [Concomitant]

REACTIONS (2)
  - Off label use [Unknown]
  - Renal failure [Unknown]
